FAERS Safety Report 7770365-1 (Version None)
Quarter: 2011Q3

REPORT INFORMATION
  Report Type: 
  Country: None (occurrence: None)
  Receive Date: 20110922
  Receipt Date: 20100903
  Transmission Date: 20111222
  Serious: No
  Sender: FDA-Public Use
  Company Number: US-ASTRAZENECA-2010SE41611

PATIENT
  Age: 41 Year
  Sex: Male

DRUGS (8)
  1. SEROQUEL [Suspect]
     Route: 048
     Dates: start: 20100825, end: 20100831
  2. SEROQUEL [Suspect]
     Indication: PANIC ATTACK
     Route: 048
  3. LORAZEPAM [Concomitant]
     Route: 048
  4. SEROQUEL [Suspect]
     Route: 048
  5. SEROQUEL [Suspect]
     Route: 048
     Dates: start: 20100825, end: 20100831
  6. SEROQUEL [Suspect]
     Indication: OBSESSIVE-COMPULSIVE DISORDER
     Route: 048
  7. SEROQUEL [Suspect]
     Route: 048
  8. PAXIL [Concomitant]
     Route: 048

REACTIONS (4)
  - PANIC REACTION [None]
  - SOMNOLENCE [None]
  - DYSKINESIA [None]
  - DRUG INEFFECTIVE [None]
